FAERS Safety Report 8053418-2 (Version None)
Quarter: 2012Q1

REPORT INFORMATION
  Report Type: 
  Country: None (occurrence: None)
  Receive Date: 20120118
  Receipt Date: 20120110
  Transmission Date: 20120608
  Serious: Yes (Life-Threatening, Hospitalization, Disabling, Other)
  Sender: FDA-Public Use
  Company Number: US-GLAXOSMITHKLINE-A0958165A

PATIENT
  Age: 43 Year
  Sex: Female
  Weight: 79.5 kg

DRUGS (3)
  1. LAMICTAL [Suspect]
     Indication: PARTIAL SEIZURES
     Route: 048
     Dates: start: 19990101, end: 19990101
  2. DEPAKOTE [Suspect]
     Indication: CONVULSION
     Route: 065
     Dates: end: 19990101
  3. SERTRALINE HYDROCHLORIDE [Concomitant]

REACTIONS (8)
  - HEPATIC FAILURE [None]
  - HEPATIC ENZYME INCREASED [None]
  - LIVER INJURY [None]
  - JAUNDICE [None]
  - LIVER TRANSPLANT [None]
  - RENAL FAILURE [None]
  - SKIN DISCOLOURATION [None]
  - RASH [None]
